FAERS Safety Report 23072733 (Version 1)
Quarter: 2023Q4

REPORT INFORMATION
  Report Type: Spontaneous
  Country: US (occurrence: US)
  Receive Date: 20231017
  Receipt Date: 20231017
  Transmission Date: 20240109
  Serious: No
  Sender: FDA-Public Use
  Company Number: US-PADAGIS-2023PAD01443

PATIENT

DRUGS (4)
  1. ESTRADIOL VAGINAL [Suspect]
     Active Substance: ESTRADIOL
     Indication: Prophylaxis urinary tract infection
     Dosage: 0.5 G TWICE WEEKLY
     Route: 067
     Dates: start: 20231002
  2. ESTRADIOL VAGINAL [Suspect]
     Active Substance: ESTRADIOL
     Indication: Atrophic vulvovaginitis
  3. VAGIFEM [Concomitant]
     Active Substance: ESTRADIOL
     Indication: Prophylaxis urinary tract infection
     Dosage: UNK
     Route: 065
     Dates: start: 2008, end: 2023
  4. VAGIFEM [Concomitant]
     Active Substance: ESTRADIOL
     Indication: Atrophic vulvovaginitis

REACTIONS (1)
  - Prescribed underdose [Unknown]

NARRATIVE: CASE EVENT DATE: 20231002
